FAERS Safety Report 4867625-0 (Version None)
Quarter: 2005Q4

REPORT INFORMATION
  Report Type: 
  Country: None (occurrence: None)
  Receive Date: 20051222
  Receipt Date: 20051212
  Transmission Date: 20060501
  Serious: Yes (Other)
  Sender: FDA-Public Use
  Company Number: 200514943BCC

PATIENT
  Sex: Female

DRUGS (3)
  1. MILK OF MAGNESIA TAB [Suspect]
  2. DARVOCET-N 100 [Concomitant]
  3. HYCAMTIN [Concomitant]

REACTIONS (2)
  - ABDOMINAL RIGIDITY [None]
  - CONDITION AGGRAVATED [None]
